FAERS Safety Report 8576196 (Version 5)
Quarter: 2014Q2

REPORT INFORMATION
  Report Type: Spontaneous
  Country: US (occurrence: US)
  Receive Date: 20120523
  Receipt Date: 20140514
  Transmission Date: 20141212
  Serious: Yes (Other)
  Sender: FDA-Public Use
  Company Number: US-PFIZER INC-2012121418

PATIENT
  Age: 58 Year
  Sex: Male
  Weight: 111 kg

DRUGS (5)
  1. DEPO-TESTOSTERONE [Suspect]
     Indication: ORCHIDECTOMY
     Dosage: 200 MG/ML, ONCE IN EVERY TWO WEEKS
     Route: 030
     Dates: start: 1991
  2. DEPO-TESTOSTERONE [Suspect]
     Indication: TESTIS CANCER
     Dosage: UNK
  3. DEPO-TESTOSTERONE [Suspect]
     Indication: ERECTILE DYSFUNCTION
     Dosage: UNK
  4. DEPO-TESTOSTERONE [Suspect]
     Dosage: UNK
  5. DEPO-TESTOSTERONE [Suspect]
     Dosage: UNK

REACTIONS (12)
  - Cardiac disorder [Unknown]
  - Malaise [Recovered/Resolved]
  - Feeling hot [Recovered/Resolved]
  - Abdominal pain upper [Recovered/Resolved]
  - Gastrooesophageal reflux disease [Recovered/Resolved]
  - Thirst [Unknown]
  - Chromaturia [Unknown]
  - Sluggishness [Unknown]
  - Fatigue [Unknown]
  - Activities of daily living impaired [Unknown]
  - Feeling cold [Unknown]
  - Drug ineffective for unapproved indication [Unknown]
